FAERS Safety Report 8848516 (Version 1)
Quarter: 2012Q4

REPORT INFORMATION
  Report Type: 
  Country: FR (occurrence: FR)
  Receive Date: 20121018
  Receipt Date: 20121018
  Transmission Date: 20130627
  Serious: Yes (Hospitalization)
  Sender: FDA-Public Use
  Company Number: FR-ASTRAZENECA-2012SE77686

PATIENT
  Age: 11135 Day
  Sex: Female

DRUGS (6)
  1. MOPRAL [Suspect]
     Route: 048
     Dates: start: 20120808, end: 20120821
  2. PROFENID [Suspect]
     Indication: HEADACHE
     Route: 048
     Dates: start: 20120808, end: 20120821
  3. CHAMPIX [Suspect]
     Indication: EX-TOBACCO USER
     Route: 048
     Dates: start: 20120803, end: 20120805
  4. CHAMPIX [Suspect]
     Indication: EX-TOBACCO USER
     Route: 048
     Dates: start: 20120806, end: 20120808
  5. CHAMPIX [Suspect]
     Indication: EX-TOBACCO USER
     Route: 048
     Dates: start: 20120819, end: 20120819
  6. CHAMPIX [Suspect]
     Indication: EX-TOBACCO USER
     Route: 048
     Dates: start: 20120808, end: 20120812

REACTIONS (5)
  - Aphasia [Recovered/Resolved]
  - Paraesthesia [Recovered/Resolved]
  - VIIth nerve paralysis [Unknown]
  - Hypoaesthesia [Unknown]
  - Headache [Unknown]
